FAERS Safety Report 13653924 (Version 3)
Quarter: 2017Q4

REPORT INFORMATION
  Report Type: Spontaneous
  Country: JP (occurrence: JP)
  Receive Date: 20170614
  Receipt Date: 20171026
  Transmission Date: 20180320
  Serious: Yes (Hospitalization, Other)
  Sender: FDA-Public Use
  Company Number: JP-ABBVIE-17P-087-2007871-00

PATIENT
  Age: 60 Year
  Sex: Male

DRUGS (1)
  1. CLARITHROMYCIN MYLAN [Suspect]
     Active Substance: CLARITHROMYCIN
     Indication: INFLAMMATION
     Dosage: 200 MG, QD
     Route: 048
     Dates: start: 201705, end: 20170608

REACTIONS (5)
  - Dysgeusia [Unknown]
  - Depressed level of consciousness [Recovered/Resolved]
  - Malaise [Unknown]
  - Depressed mood [Unknown]
  - Fall [Unknown]

NARRATIVE: CASE EVENT DATE: 20170604
